FAERS Safety Report 5659871-3 (Version None)
Quarter: 2008Q1

REPORT INFORMATION
  Report Type: 
  Country: None (occurrence: None)
  Receive Date: 20080311
  Receipt Date: 20070804
  Transmission Date: 20080703
  Serious: No
  Sender: FDA-Public Use
  Company Number: US-BAYER-200712491BCC

PATIENT
  Age: 17 Year
  Sex: Male
  Weight: 57 kg

DRUGS (1)
  1. ALEVE [Suspect]
     Indication: DRUG USE FOR UNKNOWN INDICATION
     Dosage: TOTAL DAILY DOSE: 11000 MG  UNIT DOSE: 220 MG
     Route: 048
     Dates: start: 20070804

REACTIONS (2)
  - INTENTIONAL OVERDOSE [None]
  - NO ADVERSE EVENT [None]
